FAERS Safety Report 23056520 (Version 1)
Quarter: 2023Q4

REPORT INFORMATION
  Report Type: Spontaneous
  Country: US (occurrence: US)
  Receive Date: 20231011
  Receipt Date: 20231011
  Transmission Date: 20240109
  Serious: No
  Sender: FDA-Public Use
  Company Number: US-ABBVIE-5443011

PATIENT
  Sex: Female

DRUGS (1)
  1. IMBRUVICA [Suspect]
     Active Substance: IBRUTINIB
     Indication: Product used for unknown indication
     Dosage: FORM STRENGTH: 420 MILLIGRAMS ?TAKE ONE 1 TABLET BY MOUTH ONCE DAILY. TABLET SHOULD BE TAKEN WITH...
     Route: 048
     Dates: start: 20221025

REACTIONS (1)
  - Nasopharyngitis [Unknown]
